FAERS Safety Report 6327995-3 (Version None)
Quarter: 2009Q3

REPORT INFORMATION
  Report Type: 
  Country: None (occurrence: None)
  Receive Date: 20090825
  Receipt Date: 20081210
  Transmission Date: 20100115
  Serious: No
  Sender: FDA-Public Use
  Company Number: US-ABBOTT-08P-163-0476473-00

PATIENT
  Sex: Female
  Weight: 45.4 kg

DRUGS (4)
  1. SYNTHROID [Suspect]
     Indication: THYROID DISORDER
     Route: 048
  2. SYNTHROID [Suspect]
     Indication: AUTOIMMUNE THYROIDITIS
  3. BREVICON 21 [Interacting]
     Indication: ORAL CONTRACEPTION
     Route: 048
     Dates: start: 20070301, end: 20080901
  4. TOPAMAX [Interacting]
     Indication: MIGRAINE PROPHYLAXIS
     Route: 048
     Dates: start: 20070301

REACTIONS (2)
  - DRUG INTERACTION [None]
  - THERAPEUTIC RESPONSE UNEXPECTED [None]
